FAERS Safety Report 8584289-3 (Version None)
Quarter: 2012Q3

REPORT INFORMATION
  Report Type: 
  Country: None (occurrence: None)
  Receive Date: 20120810
  Receipt Date: 20120731
  Transmission Date: 20120928
  Serious: No
  Sender: FDA-Public Use
  Company Number: US-BIOGENIDEC-2012BI008334

PATIENT
  Age: 61 Year
  Sex: Female

DRUGS (3)
  1. IMITREX [Concomitant]
     Indication: MIGRAINE
  2. TYSABRI [Suspect]
     Indication: MULTIPLE SCLEROSIS
     Route: 042
     Dates: start: 20120301
  3. AVONEX [Concomitant]
     Indication: MULTIPLE SCLEROSIS
     Route: 030
     Dates: start: 20080530

REACTIONS (7)
  - DYSGEUSIA [None]
  - HEADACHE [None]
  - ABNORMAL SENSATION IN EYE [None]
  - FATIGUE [None]
  - HEAD DISCOMFORT [None]
  - CHILLS [None]
  - UPPER RESPIRATORY TRACT INFECTION [None]
